FAERS Safety Report 23411071 (Version 2)
Quarter: 2024Q1

REPORT INFORMATION
  Report Type: Report from Study
  Country: IT (occurrence: IT)
  Receive Date: 20240117
  Receipt Date: 20240122
  Transmission Date: 20240409
  Serious: Yes (Other)
  Sender: FDA-Public Use
  Company Number: None

PATIENT
  Age: 78 Year
  Sex: Female

DRUGS (18)
  1. MEDROL [Interacting]
     Active Substance: METHYLPREDNISOLONE
     Dosage: 4 MG AT 8:00 AM ON MONDAY AND THUSDAY
  2. PAROXETINE MESYLATE [Interacting]
     Active Substance: PAROXETINE MESYLATE
     Dosage: FREQ:24 H;1MG/ML
     Route: 048
  3. OMEPRAZOLE SODIUM [Interacting]
     Active Substance: OMEPRAZOLE SODIUM
     Dosage: 20 DF, DAILY AT 08:00 AM
     Route: 048
  4. ATORVASTATIN [Interacting]
     Active Substance: ATORVASTATIN
     Dosage: 80 MG, DAILY AT 08:00 PM
     Route: 048
  5. COUMADIN [Suspect]
     Active Substance: WARFARIN SODIUM
     Dosage: 1.25 MG, ALTERNATE DAY FREQ:48 H;5MG
     Route: 048
     Dates: start: 20231224, end: 20231226
  6. EZETIMIBE [Interacting]
     Active Substance: EZETIMIBE
     Dosage: 10 MG, DAILY AT 08:00 PM
     Route: 048
  7. ALLOPURINOL [Interacting]
     Active Substance: ALLOPURINOL
     Dosage: 300 MG AT 02:00 PM
     Route: 048
  8. PALEXIA [Concomitant]
     Active Substance: TAPENTADOL HYDROCHLORIDE
     Dosage: 100 MG, 2X/DAY 8:00 AM AND 8:00 PM
  9. MOMETASONE [Concomitant]
     Active Substance: MOMETASONE
     Dosage: 140D 2 INSUFFLATIONS 8:00 AM AND 8:00 PM FOR ONE MONTH
  10. EDOXABAN TOSYLATE [Concomitant]
     Active Substance: EDOXABAN TOSYLATE
     Dosage: 60 MG, DAILY
  11. LEVOTHYROXINE [Concomitant]
     Active Substance: LEVOTHYROXINE\LEVOTHYROXINE SODIUM
     Dosage: 150 UG 08:00 AM
  12. LEVOTHYROXINE [Concomitant]
     Active Substance: LEVOTHYROXINE\LEVOTHYROXINE SODIUM
     Dosage: 100 UG 8:00 AM MONDAY TO FRIDAY
  13. SINEMET [Concomitant]
     Active Substance: CARBIDOPA\LEVODOPA
     Dosage: 100 MG+25 MG AT 8:00 AM AND 02:00 PM
  14. CANRENOATE POTASSIUM [Concomitant]
     Active Substance: CANRENOATE POTASSIUM
     Dosage: 50 MG AT 02:00 PM
  15. LASIX [Concomitant]
     Active Substance: FUROSEMIDE
     Dosage: 25 MG AT 08:00 AM AND AT 02:00 PM
  16. BISOPROLOL [Concomitant]
     Active Substance: BISOPROLOL\BISOPROLOL FUMARATE
     Dosage: 2.5 MG, DAILY AT 08:00 AM
  17. MAGNESIUM CARBONATE [Concomitant]
     Active Substance: MAGNESIUM CARBONATE
     Dosage: 1 DF, DAILY  1 SACHET AT 02:00 PM
  18. CALCIUM CARBONATE\CHOLECALCIFEROL [Concomitant]
     Active Substance: CALCIUM CARBONATE\CHOLECALCIFEROL
     Dosage: 1 DF, 2X/DAY 1 TABLET AFTER LUNCH AND ONE AFTER DINNER

REACTIONS (6)
  - Drug interaction [Recovering/Resolving]
  - Urosepsis [Recovering/Resolving]
  - International normalised ratio increased [Recovering/Resolving]
  - Pyrexia [Recovering/Resolving]
  - Tremor [Recovering/Resolving]
  - Dyspnoea [Recovering/Resolving]

NARRATIVE: CASE EVENT DATE: 20240101
